FAERS Safety Report 9460501 (Version 2)
Quarter: 2013Q3

REPORT INFORMATION
  Report Type: Report from Study
  Country: BR (occurrence: BR)
  Receive Date: 20130815
  Receipt Date: 20130911
  Transmission Date: 20140515
  Serious: Yes (Hospitalization, Other)
  Sender: FDA-Public Use
  Company Number: BR-ABBOTT-13P-020-1131828-00

PATIENT
  Sex: Male
  Weight: 75 kg

DRUGS (2)
  1. HUMIRA [Suspect]
     Indication: RHEUMATOID ARTHRITIS
     Route: 058
     Dates: end: 20130805
  2. ATENOLOL [Suspect]
     Indication: ARRHYTHMIA

REACTIONS (6)
  - Infarction [Unknown]
  - Pain [Unknown]
  - Dyspepsia [Unknown]
  - Chest pain [Unknown]
  - Cardiac disorder [Unknown]
  - Arterial stenosis [Unknown]
